FAERS Safety Report 9589395 (Version 1)
Quarter: 2013Q4

REPORT INFORMATION
  Report Type: Spontaneous
  Country: US (occurrence: US)
  Receive Date: 20131003
  Receipt Date: 20131003
  Transmission Date: 20140711
  Serious: No
  Sender: FDA-Public Use
  Company Number: US-AMGEN-USASP2012069850

PATIENT
  Sex: Female
  Weight: 63.49 kg

DRUGS (6)
  1. ENBREL [Suspect]
     Indication: PSORIASIS
     Dosage: 50 MG, QWK
     Route: 058
  2. CLOBETASOL [Concomitant]
     Dosage: 0.05 %, UNK
  3. MULTIVITAMINS, PLAIN [Concomitant]
     Dosage: UNK,WOMENS
  4. VIT D [Concomitant]
     Dosage: HIGH POTENCEYUNK
  5. CALCIUM [Concomitant]
     Dosage: 500 UNK, UNK
  6. PHILLIPS COLON HEALTH [Concomitant]
     Dosage: UNK

REACTIONS (1)
  - Therapeutic response decreased [Unknown]
